FAERS Safety Report 7417163-6 (Version None)
Quarter: 2011Q2

REPORT INFORMATION
  Report Type: 
  Country: None (occurrence: None)
  Receive Date: 20110415
  Receipt Date: 20110405
  Transmission Date: 20111010
  Serious: Yes (Death)
  Sender: FDA-Public Use
  Company Number: US-CELGENEUS-163-21880-11040668

PATIENT
  Sex: Male
  Weight: 59.111 kg

DRUGS (4)
  1. ZOMETA [Concomitant]
     Route: 065
  2. FENTANYL [Concomitant]
     Route: 065
  3. PROCRIT [Concomitant]
     Route: 065
  4. REVLIMID [Suspect]
     Indication: MULTIPLE MYELOMA
     Dosage: 5 MILLIGRAM
     Route: 048
     Dates: start: 20100301, end: 20110329

REACTIONS (3)
  - DISEASE PROGRESSION [None]
  - DEATH [None]
  - DRUG INEFFECTIVE [None]
